FAERS Safety Report 16474505 (Version 1)
Quarter: 2019Q3

REPORT INFORMATION
  Report Type: Spontaneous
  Country: US (occurrence: US)
  Receive Date: 20190624
  Receipt Date: 20190624
  Transmission Date: 20191004
  Serious: Yes (Congenital Anomaly, Other)
  Sender: FDA-Public Use
  Company Number: None

PATIENT
  Age: 88 Year
  Sex: Female
  Weight: 53.73 kg

DRUGS (22)
  1. ALENDRONATE SODIUM. [Concomitant]
     Active Substance: ALENDRONATE SODIUM
  2. CALTRATE [Concomitant]
     Active Substance: CALCIUM CARBONATE
  3. ISOSORBIDE MONONITRATE. [Concomitant]
     Active Substance: ISOSORBIDE MONONITRATE
  4. MULTIVITAMIN ADULTS [Concomitant]
  5. BIOTIN [Concomitant]
     Active Substance: BIOTIN
  6. KEFLEX [Concomitant]
     Active Substance: CEPHALEXIN
  7. ASPIRIN. [Concomitant]
     Active Substance: ASPIRIN
  8. LOVASTATIN. [Concomitant]
     Active Substance: LOVASTATIN
  9. JADENU [Suspect]
     Active Substance: DEFERASIROX
     Indication: MYELODYSPLASTIC SYNDROME
     Route: 048
     Dates: start: 20181101
  10. NITROSTAT [Concomitant]
     Active Substance: NITROGLYCERIN
  11. OMEPRAZOLE. [Concomitant]
     Active Substance: OMEPRAZOLE
  12. VITAMIN D (CHOLECALCIFEROL) [Concomitant]
     Active Substance: CHOLECALCIFEROL
  13. NAPROXEN. [Concomitant]
     Active Substance: NAPROXEN
  14. ARANESP (ALBUMIN FREE) [Concomitant]
  15. LEVOTHYROXINE SODIUM. [Concomitant]
     Active Substance: LEVOTHYROXINE SODIUM
  16. PREMARIN [Concomitant]
     Active Substance: ESTROGENS, CONJUGATED
  17. CRANBERRY. [Concomitant]
     Active Substance: CRANBERRY
  18. LIDOCAINE-PRILOCAINE [Concomitant]
     Active Substance: LIDOCAINE\PRILOCAINE
  19. MAGNESIUM AMINO ACID CHELATE [Concomitant]
     Active Substance: MAGNESIUM
  20. BYSTOLIC [Concomitant]
     Active Substance: NEBIVOLOL HYDROCHLORIDE
  21. TOLTERODINE [Concomitant]
     Active Substance: TOLTERODINE
  22. NITROFURANTOIN. [Concomitant]
     Active Substance: NITROFURANTOIN

REACTIONS (1)
  - Back pain [None]
